FAERS Safety Report 18932713 (Version 1)
Quarter: 2021Q1

REPORT INFORMATION
  Report Type: Spontaneous
  Country: US (occurrence: US)
  Receive Date: 20210223
  Receipt Date: 20210223
  Transmission Date: 20210420
  Serious: Yes (Hospitalization)
  Sender: FDA-Public Use
  Company Number: None

PATIENT
  Age: 81 Year
  Sex: Female
  Weight: 74 kg

DRUGS (2)
  1. WARFARIN [Suspect]
     Active Substance: WARFARIN
     Indication: ATRIAL FIBRILLATION
     Route: 048
  2. WARFARIN [Suspect]
     Active Substance: WARFARIN
     Indication: HEART VALVE REPLACEMENT
     Route: 048

REACTIONS (3)
  - Haemoglobin abnormal [None]
  - Haematocrit abnormal [None]
  - Subdural haematoma [None]

NARRATIVE: CASE EVENT DATE: 20201205
